FAERS Safety Report 14019415 (Version 5)
Quarter: 2018Q1

REPORT INFORMATION
  Report Type: Spontaneous
  Country: JP (occurrence: JP)
  Receive Date: 20170928
  Receipt Date: 20180307
  Transmission Date: 20180508
  Serious: Yes (Death)
  Sender: FDA-Public Use
  Company Number: JP-AMGEN-JPNSP2017142324

PATIENT
  Age: 66 Year
  Sex: Female
  Weight: 50 kg

DRUGS (15)
  1. TRESIBA [Concomitant]
     Active Substance: INSULIN DEGLUDEC
     Indication: DIABETES MELLITUS
     Dosage: 4 IU, QD
     Route: 058
     Dates: start: 20170711
  2. ROMIPLATE [Suspect]
     Active Substance: ROMIPLOSTIM
     Dosage: 100 MUG/KG, UNK
     Route: 058
     Dates: start: 20170707
  3. ROMIPLATE [Suspect]
     Active Substance: ROMIPLOSTIM
     Dosage: 150 MUG/KG, UNK
     Route: 058
     Dates: start: 20170714
  4. TAKECAB [Concomitant]
     Active Substance: VONOPRAZAN FUMURATE
     Dosage: 20 MG, QD
     Route: 048
     Dates: start: 20160425
  5. PREDNISOLONE. [Concomitant]
     Active Substance: PREDNISOLONE
     Dosage: 40 MG, QD
  6. ROMIPLATE [Suspect]
     Active Substance: ROMIPLOSTIM
     Dosage: 200 MUG/KG, UNK
     Route: 058
     Dates: start: 20170728
  7. ROMIPLATE [Suspect]
     Active Substance: ROMIPLOSTIM
     Dosage: 200 MUG/KG, QWK
     Route: 058
     Dates: start: 20170809
  8. FUROSEMIDE. [Concomitant]
     Active Substance: FUROSEMIDE
     Dosage: 20 MG, QD
     Route: 048
     Dates: start: 20170712, end: 20170905
  9. ROMIPLATE [Suspect]
     Active Substance: ROMIPLOSTIM
     Indication: IMMUNE THROMBOCYTOPENIC PURPURA
     Dosage: 50 MUG/KG, UNK
     Route: 058
     Dates: start: 20170630
  10. ROMIPLATE [Suspect]
     Active Substance: ROMIPLOSTIM
     Dosage: 250 MUG/KG, UNK
     Route: 058
     Dates: start: 20170829
  11. ARTIST [Concomitant]
     Active Substance: CARVEDILOL
     Dosage: 10 MG, QD
     Route: 048
     Dates: start: 20160315
  12. ALDACTONE A [Concomitant]
     Active Substance: SPIRONOLACTONE
     Dosage: 50 MG, QD
     Route: 048
     Dates: start: 20170712
  13. AMLODIN [Concomitant]
     Active Substance: AMLODIPINE BESYLATE
     Dosage: 0.25 MG, QD
     Route: 048
     Dates: start: 20170515
  14. SAMSCA [Concomitant]
     Active Substance: TOLVAPTAN
     Dosage: 7.5 MG, QD
     Route: 048
     Dates: start: 20170715
  15. NOVORAPID [Concomitant]
     Active Substance: INSULIN ASPART
     Indication: DIABETES MELLITUS
     Dosage: 6 IU, TID
     Route: 058
     Dates: start: 20170711

REACTIONS (1)
  - Mature B-cell type acute leukaemia [Fatal]

NARRATIVE: CASE EVENT DATE: 20170908
